FAERS Safety Report 9340675 (Version 1)
Quarter: 2013Q2

REPORT INFORMATION
  Report Type: Spontaneous
  Country: US (occurrence: US)
  Receive Date: 20130610
  Receipt Date: 20130610
  Transmission Date: 20140414
  Serious: Yes (Other)
  Sender: FDA-Public Use
  Company Number: US-GLAXOSMITHKLINE-A1026251A

PATIENT
  Sex: Male
  Weight: 92.3 kg

DRUGS (14)
  1. AVANDIA [Suspect]
     Indication: PRODUCT USED FOR UNKNOWN INDICATION
     Dosage: 8MG PER DAY
     Route: 048
  2. ZOLOFT [Concomitant]
     Indication: STRESS
  3. BYETTA [Concomitant]
  4. BYSTOLIC [Concomitant]
  5. COLCHICINE [Concomitant]
  6. PROBENECID [Concomitant]
  7. CRESTOR [Concomitant]
  8. DESYREL [Concomitant]
  9. MOTRIN [Concomitant]
  10. PEPCID [Concomitant]
  11. SINGULAIR [Concomitant]
  12. SYNTHROID [Concomitant]
  13. TESTIM [Concomitant]
  14. VITAMIN D3 [Concomitant]

REACTIONS (2)
  - Subcutaneous abscess [Unknown]
  - Blood glucose increased [Unknown]
